FAERS Safety Report 14327713 (Version 3)
Quarter: 2018Q2

REPORT INFORMATION
  Report Type: Report from Study
  Country: US (occurrence: US)
  Receive Date: 20171227
  Receipt Date: 20180416
  Transmission Date: 20180711
  Serious: Yes (Hospitalization, Other)
  Sender: FDA-Public Use
  Company Number: US-BAYER-2017-230798

PATIENT
  Age: 88 Year
  Sex: Male

DRUGS (11)
  1. LIPITOR [Concomitant]
     Active Substance: ATORVASTATIN CALCIUM
     Dosage: 80 MG, QD
     Route: 048
  2. FERROUS SULFATE. [Concomitant]
     Active Substance: FERROUS SULFATE
     Dosage: 65 MG DAILY WITH BREAKFAST
     Route: 048
  3. NOVOLOG [Concomitant]
     Active Substance: INSULIN ASPART
     Dosage: 25 IU, HS (UNDER THE SKIN)
  4. TOPROL XL [Concomitant]
     Active Substance: METOPROLOL SUCCINATE
     Dosage: 50 MG, QD
     Route: 048
  5. NITROSTAT [Concomitant]
     Active Substance: NITROGLYCERIN
     Indication: CHEST PAIN
     Dosage: PLACE 0.4 MG UNDER THE TONGUE EVERY 5 MINUTES AS NEEDED
     Route: 060
     Dates: start: 20170511
  6. COMPAZINE [Concomitant]
     Active Substance: PROCHLORPERAZINE MALEATE
     Indication: VOMITING
  7. NOVOLOG [Concomitant]
     Active Substance: INSULIN ASPART
     Dosage: 10 UNITS UNDER THE SKIN BEFORE A BREAKFAST
  8. COMPAZINE [Concomitant]
     Active Substance: PROCHLORPERAZINE MALEATE
     Indication: NAUSEA
     Dosage: 10 MG EVERY 6 HOURS AS NEEDED
     Route: 048
  9. NEXAVAR [Suspect]
     Active Substance: SORAFENIB
     Indication: HEPATOCELLULAR CARCINOMA
     Dosage: 400 MG, BID
     Route: 048
     Dates: start: 20171117, end: 20171212
  10. NORVASC [Concomitant]
     Active Substance: AMLODIPINE BESYLATE
     Dosage: 10 MG, QD
     Route: 048
  11. TRAVATAN [Concomitant]
     Active Substance: TRAVOPROST
     Dosage: 1 DROP INTO BOTH EYES EVERY NIGHT
     Route: 047

REACTIONS (16)
  - Glomerular filtration rate decreased [None]
  - Diarrhoea [None]
  - Anaemia [None]
  - Faeces discoloured [None]
  - Lymphadenopathy mediastinal [None]
  - Nausea [None]
  - Hypoxia [None]
  - Acute kidney injury [None]
  - Thrombocytopenia [None]
  - Thyroid disorder [None]
  - Erythema [None]
  - Asthenia [None]
  - Unevaluable event [None]
  - Dehydration [Not Recovered/Not Resolved]
  - Disorientation [Not Recovered/Not Resolved]
  - Fatigue [None]

NARRATIVE: CASE EVENT DATE: 201711
